FAERS Safety Report 14000314 (Version 1)
Quarter: 2017Q3

REPORT INFORMATION
  Report Type: Spontaneous
  Country: US (occurrence: US)
  Receive Date: 20170922
  Receipt Date: 20170922
  Transmission Date: 20171128
  Serious: No
  Sender: FDA-Public Use
  Company Number: US-WELLSTAT THERAPEUTICS CORPORATION-2027336

PATIENT
  Age: 43 Year
  Sex: Female

DRUGS (1)
  1. VISTOGARD [Suspect]
     Active Substance: URIDINE TRIACETATE
     Indication: OVERDOSE
     Route: 048
     Dates: start: 20170818

REACTIONS (2)
  - Dizziness [Unknown]
  - Tachycardia [Unknown]

NARRATIVE: CASE EVENT DATE: 20170818
